FAERS Safety Report 5718228-7 (Version None)
Quarter: 2008Q2

REPORT INFORMATION
  Report Type: 
  Country: None (occurrence: None)
  Receive Date: 20080425
  Receipt Date: 20080414
  Transmission Date: 20081010
  Serious: Yes (Hospitalization)
  Sender: FDA-Public Use
  Company Number: FR-GILEAD-2008-0016087

PATIENT
  Sex: Male

DRUGS (4)
  1. TRUVADA [Suspect]
     Indication: HIV INFECTION
     Route: 048
     Dates: start: 20080305
  2. TRUVADA [Suspect]
     Indication: HEPATITIS B VIRUS
  3. SUSTIVA [Suspect]
     Indication: HIV INFECTION
     Route: 048
     Dates: start: 20060101, end: 20080312
  4. KIVEXA [Suspect]
     Indication: HIV INFECTION
     Route: 048
     Dates: start: 20060101, end: 20080305

REACTIONS (6)
  - CHOLELITHIASIS [None]
  - DISEASE PROGRESSION [None]
  - DRUG INTERACTION [None]
  - HEPATITIS B [None]
  - HEPATOTOXICITY [None]
  - HYPERBILIRUBINAEMIA [None]
